FAERS Safety Report 5799007-1 (Version None)
Quarter: 2008Q3

REPORT INFORMATION
  Report Type: 
  Country: None (occurrence: None)
  Receive Date: 20080702
  Receipt Date: 20080506
  Transmission Date: 20090109
  Serious: No
  Sender: FDA-Public Use
  Company Number: US-BRISTOL-MYERS SQUIBB COMPANY-14127377

PATIENT
  Age: 54 Year
  Sex: Female
  Weight: 91 kg

DRUGS (4)
  1. SPRYCEL [Suspect]
     Indication: CHRONIC MYELOID LEUKAEMIA
     Dosage: 2 TABLETS/DAY
     Route: 048
     Dates: start: 20070901
  2. NEURONTIN [Concomitant]
  3. WELLBUTRIN XL [Concomitant]
  4. BETASERON [Concomitant]

REACTIONS (3)
  - CONSTIPATION [None]
  - MUSCULOSKELETAL STIFFNESS [None]
  - PAIN IN EXTREMITY [None]
